FAERS Safety Report 7603556-0 (Version None)
Quarter: 2011Q3

REPORT INFORMATION
  Report Type: 
  Country: None (occurrence: None)
  Receive Date: 20110701
  Receipt Date: 20110624
  Transmission Date: 20111222
  Serious: Yes (Life-Threatening)
  Sender: FDA-Public Use
  Company Number: 2010JP007068

PATIENT
  Age: 54 Year
  Sex: Male
  Weight: 63.2 kg

DRUGS (20)
  1. LACTULOSE [Concomitant]
  2. CINACALCET HYDROCHLORIDE (CINACALCET HYDROCHLORIDE) [Concomitant]
  3. NORVASC [Concomitant]
  4. OLMESARTAN MEDOXOMIL [Concomitant]
  5. ALFAROL (ALFACALCIDOL) [Concomitant]
  6. BAKUMONDOUTO (HERBAL EXTRACT NOS) [Concomitant]
  7. GASPORT (FAMOTIDINE) INJECTION [Suspect]
     Indication: GASTRITIS
     Dosage: 20 MG, UID/QD, IV NOS
     Route: 042
     Dates: start: 20101018, end: 20101101
  8. FUNGUARD (MICAFUNGIN) INJECTION [Suspect]
     Indication: PERITONEAL DIALYSIS
     Dosage: 150 MG, UID/QD, IV DRIP
     Route: 041
     Dates: start: 20101010, end: 20101101
  9. FUNGUARD (MICAFUNGIN) INJECTION [Suspect]
     Indication: INFECTIOUS PERITONITIS
     Dosage: 150 MG, UID/QD, IV DRIP
     Route: 041
     Dates: start: 20101010, end: 20101101
  10. MUCOSTA (REBAMIPIDE) [Concomitant]
  11. SENNOSIDE (SENNOSIDE A+B) [Concomitant]
  12. PLAVIX [Concomitant]
  13. MASHI-NIN-GAN (CHINESE HERBAL MEDICINE) [Concomitant]
  14. CALTAN (CALCIUM CARBONATE) [Concomitant]
  15. ADALAT [Concomitant]
  16. PANTOL (PANTHENOL) [Concomitant]
  17. CODEINE PHOSPHATE (CODEINE PHOSPHATE) [Concomitant]
  18. RENAGEL [Concomitant]
  19. DOXAZOSIN MESYLATE [Concomitant]
  20. NAUZELIN (DOMPERIDONE) [Concomitant]

REACTIONS (2)
  - ILEUS [None]
  - AGRANULOCYTOSIS [None]
